FAERS Safety Report 24011894 (Version 1)
Quarter: 2024Q2

REPORT INFORMATION
  Report Type: Spontaneous
  Country: US (occurrence: US)
  Receive Date: 20240625
  Receipt Date: 20240625
  Transmission Date: 20240716
  Serious: Yes (Life-Threatening, Hospitalization)
  Sender: FDA-Public Use
  Company Number: US-i-Health, Inc.-2158526

PATIENT
  Age: 55 Year
  Sex: Female
  Weight: 113.64 kg

DRUGS (2)
  1. AZO URINARY PAIN RELIEF MAXIMUM STRENGTH [Suspect]
     Active Substance: PHENAZOPYRIDINE HYDROCHLORIDE
     Indication: Cystitis interstitial
  2. Supplemental oxygen by nasal cannula [Concomitant]

REACTIONS (1)
  - Hypoxia [Recovered/Resolved]
